FAERS Safety Report 4899753-8 (Version None)
Quarter: 2006Q1

REPORT INFORMATION
  Report Type: 
  Country: None (occurrence: None)
  Receive Date: 20060131
  Receipt Date: 20060111
  Transmission Date: 20060701
  Serious: Yes (Other)
  Sender: FDA-Public Use
  Company Number: 8917

PATIENT
  Sex: Male

DRUGS (1)
  1. SEPTOCAINE [Suspect]

REACTIONS (1)
  - HYPOAESTHESIA [None]
